FAERS Safety Report 5199934-2 (Version None)
Quarter: 2007Q1

REPORT INFORMATION
  Report Type: 
  Country: None (occurrence: None)
  Receive Date: 20070105
  Receipt Date: 20061228
  Transmission Date: 20070707
  Serious: Yes (Disabling, Other)
  Sender: FDA-Public Use
  Company Number: DE-BAYER-200610747BVD

PATIENT
  Age: 75 Year
  Sex: Male

DRUGS (7)
  1. LEVITRA [Suspect]
     Indication: DRUG USE FOR UNKNOWN INDICATION
     Route: 048
     Dates: start: 20040902, end: 20040902
  2. UROXATRAL [Concomitant]
  3. TARKA [Concomitant]
  4. ALLOPURINOL SODIUM [Concomitant]
  5. BISOPROLOL FUMARATE [Concomitant]
     Route: 048
  6. IBUHEXAL [Concomitant]
  7. ASPIRIN [Concomitant]

REACTIONS (6)
  - AMAUROSIS FUGAX [None]
  - AMBLYOPIA [None]
  - BLINDNESS UNILATERAL [None]
  - HEADACHE [None]
  - RETINAL ARTERY OCCLUSION [None]
  - VERTIGO [None]
